FAERS Safety Report 10087589 (Version 2)
Quarter: 2014Q2

REPORT INFORMATION
  Report Type: Spontaneous
  Country: US (occurrence: US)
  Receive Date: 20140418
  Receipt Date: 20140418
  Transmission Date: 20141212
  Serious: No
  Sender: FDA-Public Use
  Company Number: US-PURDUE-USA-2013-0107136

PATIENT
  Age: 44 Year
  Sex: Male

DRUGS (1)
  1. OXYCONTIN (NDA 22-272) [Suspect]
     Indication: PAIN
     Dosage: 10 MG, DAILY
     Route: 048
     Dates: start: 20130903

REACTIONS (2)
  - Medication residue present [Not Recovered/Not Resolved]
  - Drug ineffective [Unknown]
